FAERS Safety Report 11910611 (Version 1)
Quarter: 2016Q1

REPORT INFORMATION
  Report Type: Spontaneous
  Country: US (occurrence: US)
  Receive Date: 20160112
  Receipt Date: 20160112
  Transmission Date: 20160526
  Serious: No
  Sender: FDA-Public Use
  Company Number: US-GLAXOSMITHKLINE-US2016003369

PATIENT
  Age: 70 Year
  Sex: Female

DRUGS (1)
  1. NICODERM CQ [Suspect]
     Active Substance: NICOTINE
     Indication: SMOKING CESSATION THERAPY
     Dosage: 14 MG, UNK
     Dates: start: 20151004, end: 20160108

REACTIONS (5)
  - Idiosyncratic drug reaction [Recovering/Resolving]
  - Application site pruritus [Recovering/Resolving]
  - Pruritus generalised [Recovering/Resolving]
  - Application site rash [Recovering/Resolving]
  - Application site erythema [Recovered/Resolved]
